FAERS Safety Report 10018046 (Version 1)
Quarter: 2014Q1

REPORT INFORMATION
  Report Type: Spontaneous
  Country: US (occurrence: US)
  Receive Date: 20140318
  Receipt Date: 20140318
  Transmission Date: 20141002
  Serious: No
  Sender: FDA-Public Use
  Company Number: US-BRISTOL-MYERS SQUIBB COMPANY-18896332

PATIENT
  Age: 70 Year
  Sex: Female
  Weight: 52.15 kg

DRUGS (2)
  1. ERBITUX [Suspect]
     Indication: SQUAMOUS CELL CARCINOMA
     Dosage: APPROX 6-8 MONTHS
  2. NORCO [Concomitant]
     Indication: PAIN
     Dosage: 1DF= 7.5/325 MG

REACTIONS (2)
  - Dry skin [Unknown]
  - Rash pustular [Unknown]
